FAERS Safety Report 10392154 (Version 1)
Quarter: 2014Q3

REPORT INFORMATION
  Report Type: Spontaneous
  Country: US (occurrence: US)
  Receive Date: 20140819
  Receipt Date: 20140819
  Transmission Date: 20150326
  Serious: No
  Sender: FDA-Public Use
  Company Number: US-BIOGENIDEC-2014BI080121

PATIENT
  Sex: Female

DRUGS (4)
  1. LEXAPRO [Concomitant]
     Active Substance: ESCITALOPRAM OXALATE
  2. GABAPENTIN. [Concomitant]
     Active Substance: GABAPENTIN
  3. NUVIGIL [Concomitant]
     Active Substance: ARMODAFINIL
  4. TECFIDERA [Suspect]
     Active Substance: DIMETHYL FUMARATE
     Indication: MULTIPLE SCLEROSIS
     Route: 048
     Dates: start: 20140716

REACTIONS (3)
  - Dizziness [Unknown]
  - Palpitations [Unknown]
  - Flushing [Unknown]
